FAERS Safety Report 4459769-2 (Version None)
Quarter: 2004Q3

REPORT INFORMATION
  Report Type: 
  Country: None (occurrence: None)
  Receive Date: 20040928
  Receipt Date: 20040227
  Transmission Date: 20050211
  Serious: No
  Sender: FDA-Public Use
  Company Number: US-BRISTOL-MYERS SQUIBB COMPANY-12520342

PATIENT
  Age: 17 Year
  Sex: Female
  Weight: 51 kg

DRUGS (1)
  1. KENALOG-40 [Suspect]
     Indication: MULTIPLE ALLERGIES
     Route: 030
     Dates: start: 20030501

REACTIONS (1)
  - INJECTION SITE REACTION [None]
